FAERS Safety Report 18935099 (Version 1)
Quarter: 2021Q1

REPORT INFORMATION
  Report Type: Spontaneous
  Country: US (occurrence: US)
  Receive Date: 20210224
  Receipt Date: 20210224
  Transmission Date: 20210420
  Serious: Yes (Other)
  Sender: FDA-Public Use
  Company Number: US-STRIDES ARCOLAB LIMITED-2021SP002422

PATIENT
  Age: 63 Year
  Sex: Female

DRUGS (1)
  1. HYDRALAZINE HCL [Suspect]
     Active Substance: HYDRALAZINE HYDROCHLORIDE
     Indication: HYPERTENSION
     Dosage: 250 MILLIGRAM FOR MANY YEARS
     Route: 065

REACTIONS (2)
  - Anti-neutrophil cytoplasmic antibody positive vasculitis [Unknown]
  - Renal disorder [Unknown]
